FAERS Safety Report 15165875 (Version 1)
Quarter: 2018Q3

REPORT INFORMATION
  Report Type: Spontaneous
  Country: US (occurrence: US)
  Receive Date: 20180719
  Receipt Date: 20180719
  Transmission Date: 20181010
  Serious: Yes (Congenital Anomaly)
  Sender: FDA-Public Use
  Company Number: US-TEVA-2018-US-926513

PATIENT
  Sex: Female

DRUGS (2)
  1. PENICILLINS [Concomitant]
     Active Substance: PENICILLIN
     Route: 065
  2. BETAMETHASONE. [Suspect]
     Active Substance: BETAMETHASONE
     Indication: PRODUCT USED FOR UNKNOWN INDICATION
     Route: 064

REACTIONS (4)
  - Congenital megacolon [Unknown]
  - Oesophageal atresia [Unknown]
  - Foetal exposure during pregnancy [Unknown]
  - Tracheo-oesophageal fistula [Unknown]
